FAERS Safety Report 13855854 (Version 1)
Quarter: 2017Q3

REPORT INFORMATION
  Report Type: Spontaneous
  Country: US (occurrence: US)
  Receive Date: 20170810
  Receipt Date: 20170810
  Transmission Date: 20171127
  Serious: Yes (Other)
  Sender: FDA-Public Use
  Company Number: US-SA-2017SA140858

PATIENT
  Sex: Female

DRUGS (1)
  1. NASACORT ALLERGY 24HR [Suspect]
     Active Substance: TRIAMCINOLONE ACETONIDE
     Indication: SINUS DISORDER
     Dosage: 2 SQUIRT PER NOSTRIL
     Route: 045
     Dates: end: 20170720

REACTIONS (15)
  - Insomnia [Unknown]
  - Malaise [Unknown]
  - Hyperhidrosis [Unknown]
  - Paraesthesia [Unknown]
  - Abdominal discomfort [Recovered/Resolved]
  - Ageusia [Unknown]
  - Loss of personal independence in daily activities [Recovered/Resolved]
  - Procedural pain [Unknown]
  - Cortisol increased [Unknown]
  - Lethargy [Unknown]
  - Feeling abnormal [Unknown]
  - Depression [Unknown]
  - Impaired work ability [Unknown]
  - Weight decreased [Unknown]
  - Peripheral coldness [Unknown]
